FAERS Safety Report 20001850 (Version 1)
Quarter: 2021Q4

REPORT INFORMATION
  Report Type: Spontaneous
  Country: US (occurrence: US)
  Receive Date: 20211027
  Receipt Date: 20211027
  Transmission Date: 20220303
  Serious: No
  Sender: FDA-Public Use
  Company Number: None

PATIENT
  Age: 72 Year
  Sex: Male
  Weight: 80 kg

DRUGS (2)
  1. CEFEPIME HYDROCHLORIDE [Suspect]
     Active Substance: CEFEPIME HYDROCHLORIDE
     Indication: Sepsis
     Dosage: OTHER
     Route: 042
     Dates: start: 20210426, end: 20210427
  2. CEFTAROLINE [Suspect]
     Active Substance: CEFTAROLINE
     Indication: Bacteraemia
     Dosage: OTHER
     Route: 042
     Dates: start: 20210426, end: 20210427

REACTIONS (7)
  - Erythema [None]
  - Rash pustular [None]
  - Skin exfoliation [None]
  - Blister [None]
  - Nikolsky^s sign [None]
  - Acute generalised exanthematous pustulosis [None]
  - Bullous impetigo [None]

NARRATIVE: CASE EVENT DATE: 20210424
